FAERS Safety Report 10380659 (Version 1)
Quarter: 2014Q3

REPORT INFORMATION
  Report Type: Spontaneous
  Country: US (occurrence: US)
  Receive Date: 20140813
  Receipt Date: 20140813
  Transmission Date: 20150326
  Serious: Yes (Death)
  Sender: FDA-Public Use
  Company Number: PHEH2014US016043

PATIENT
  Age: 66 Year
  Sex: Male

DRUGS (5)
  1. TASIGNA [Suspect]
     Active Substance: NILOTINIB
     Indication: PROSTATE CANCER
  2. TASIGNA [Suspect]
     Active Substance: NILOTINIB
     Indication: METASTASES TO LIVER
  3. TASIGNA [Suspect]
     Active Substance: NILOTINIB
     Indication: GASTRIC CANCER
     Dosage: 200 MG, BID
     Route: 048
     Dates: start: 20140723
  4. TASIGNA [Suspect]
     Active Substance: NILOTINIB
     Indication: CHOLANGIOCARCINOMA
  5. TASIGNA [Suspect]
     Active Substance: NILOTINIB
     Indication: OFF LABEL USE

REACTIONS (1)
  - Death [Fatal]

NARRATIVE: CASE EVENT DATE: 20140806
